FAERS Safety Report 7383775-1 (Version None)
Quarter: 2011Q1

REPORT INFORMATION
  Report Type: 
  Country: None (occurrence: None)
  Receive Date: 20110322
  Receipt Date: 20110322
  Transmission Date: 20110831
  Serious: Yes (Other)
  Sender: FDA-Public Use
  Company Number: None

PATIENT
  Sex: Female
  Weight: 57.7 kg

DRUGS (1)
  1. AMLODIPINE [Suspect]
     Indication: HYPERTENSION
     Dosage: 5MG QHS PO
     Route: 048
     Dates: start: 20110106, end: 20110307

REACTIONS (3)
  - BLOOD PRESSURE DECREASED [None]
  - PRODUCT SUBSTITUTION ISSUE [None]
  - SYNCOPE [None]
